FAERS Safety Report 5760126-7 (Version None)
Quarter: 2008Q2

REPORT INFORMATION
  Report Type: 
  Country: None (occurrence: None)
  Receive Date: 20080605
  Receipt Date: 20080602
  Transmission Date: 20081010
  Serious: Yes (Hospitalization)
  Sender: FDA-Public Use
  Company Number: FR-BOEHRINGER INGELHEIM GMBH, GERMANY-2008-BP-08573RO

PATIENT
  Age: 17 Year
  Sex: Male

DRUGS (18)
  1. CYCLOPHOSPHAMIDE [Suspect]
     Indication: PRIMARY MEDIASTINAL LARGE B-CELL LYMPHOMA
  2. METHOTREXATE [Suspect]
     Indication: PRIMARY MEDIASTINAL LARGE B-CELL LYMPHOMA
  3. VINCRISTINE [Suspect]
     Indication: PRIMARY MEDIASTINAL LARGE B-CELL LYMPHOMA
  4. CORTICOSTEROIDS [Suspect]
     Indication: PRIMARY MEDIASTINAL LARGE B-CELL LYMPHOMA
  5. DOXORUBICIN HCL [Suspect]
     Indication: PRIMARY MEDIASTINAL LARGE B-CELL LYMPHOMA
  6. CYTARABINE [Suspect]
     Indication: PRIMARY MEDIASTINAL LARGE B-CELL LYMPHOMA
  7. ETOPOSIDE [Suspect]
     Indication: PRIMARY MEDIASTINAL LARGE B-CELL LYMPHOMA
  8. CEFTRIAXONE [Concomitant]
     Indication: FEBRILE BONE MARROW APLASIA
  9. VANCOMYCIN [Concomitant]
     Indication: FEBRILE BONE MARROW APLASIA
  10. AMIKACIN [Concomitant]
     Indication: FEBRILE BONE MARROW APLASIA
  11. IMIPENEM [Concomitant]
     Indication: FEBRILE BONE MARROW APLASIA
  12. AMPHOTERICIN B [Concomitant]
     Indication: FEBRILE BONE MARROW APLASIA
  13. AMPHOTERICIN B [Concomitant]
     Indication: EVIDENCE BASED TREATMENT
  14. CASPOFUNGIN [Concomitant]
     Indication: HEPATOSPLENIC CANDIDIASIS
     Route: 042
  15. CASPOFUNGIN [Concomitant]
     Route: 042
  16. VORICONAZOLE [Concomitant]
     Indication: HEPATOSPLENIC CANDIDIASIS
     Route: 042
  17. CORTICOSTEROID [Concomitant]
     Indication: ANTIINFLAMMATORY THERAPY
  18. CORTICOSTEROID [Concomitant]

REACTIONS (11)
  - ABDOMINAL PAIN UPPER [None]
  - CHOLESTASIS [None]
  - FEBRILE BONE MARROW APLASIA [None]
  - HAEMATURIA [None]
  - HEPATOSPLENIC CANDIDIASIS [None]
  - INFLAMMATION [None]
  - NEUTROPHIL COUNT ABNORMAL [None]
  - NEUTROPHIL COUNT INCREASED [None]
  - PYREXIA [None]
  - SPLEEN DISORDER [None]
  - VIRUS URINE TEST POSITIVE [None]
